FAERS Safety Report 24151642 (Version 1)
Quarter: 2024Q3

REPORT INFORMATION
  Report Type: Spontaneous
  Country: US (occurrence: US)
  Receive Date: 20240730
  Receipt Date: 20240730
  Transmission Date: 20241017
  Serious: No
  Sender: PERRIGO
  Company Number: US-PERRIGO-24US001816

PATIENT
  Sex: Male
  Weight: 77.098 kg

DRUGS (22)
  1. LORATADINE [Suspect]
     Active Substance: LORATADINE
     Indication: Dermatitis
     Dosage: 10 MG, Q8H UP TO TID
     Route: 048
     Dates: start: 2020
  2. LORATADINE [Suspect]
     Active Substance: LORATADINE
     Indication: Pruritus
  3. SERTRALINE [Concomitant]
     Active Substance: SERTRALINE HYDROCHLORIDE
     Indication: Supplementation therapy
     Dosage: UNK
     Route: 065
     Dates: start: 202106
  4. LISINOPRIL [Concomitant]
     Active Substance: LISINOPRIL
     Indication: Hypertension
     Dosage: UNK, QOD
     Route: 065
     Dates: start: 2016
  5. FINASTERIDE [Concomitant]
     Active Substance: FINASTERIDE
     Indication: Prostatomegaly
     Dosage: UNK, QOD
     Route: 065
     Dates: start: 2016
  6. ASPIRIN [Concomitant]
     Active Substance: ASPIRIN
     Indication: Blood viscosity increased
     Dosage: UNK
     Route: 065
     Dates: start: 2014
  7. ARGININE [Concomitant]
     Active Substance: ARGININE
     Indication: Supplementation therapy
     Dosage: UNK, QOD
     Route: 065
     Dates: start: 2019
  8. ARGININE [Concomitant]
     Active Substance: ARGININE
     Indication: Prophylaxis
  9. HYDROXYZINE [Concomitant]
     Active Substance: HYDROXYZINE HYDROCHLORIDE
     Indication: Pruritus
     Dosage: UNK, QOD
     Route: 065
     Dates: start: 2020
  10. TAMSULOSIN [Concomitant]
     Active Substance: TAMSULOSIN
     Indication: Hormone level abnormal
     Dosage: UNK, QOD
     Route: 065
     Dates: start: 2022
  11. TAMSULOSIN [Concomitant]
     Active Substance: TAMSULOSIN
     Indication: Asthenia
  12. TAMSULOSIN [Concomitant]
     Active Substance: TAMSULOSIN
     Indication: Insomnia
  13. TAMSULOSIN [Concomitant]
     Active Substance: TAMSULOSIN
     Indication: Depression
  14. CALCIUM [Concomitant]
     Active Substance: CALCIUM
     Indication: Joint injury
     Dosage: UNK
     Route: 065
  15. CALCIUM [Concomitant]
     Active Substance: CALCIUM
     Indication: Blood potassium increased
  16. CALCIUM [Concomitant]
     Active Substance: CALCIUM
     Indication: Gastrooesophageal reflux disease
  17. GINGER [ZINGIBER OFFICINALE ROOT] [Concomitant]
     Indication: Supplementation therapy
     Dosage: UNK
     Route: 065
     Dates: start: 2021
  18. .ALPHA.-TOCOPHEROL [Concomitant]
     Active Substance: .ALPHA.-TOCOPHEROL
     Indication: Supplementation therapy
     Dosage: UNK
     Route: 065
     Dates: start: 2021
  19. GLUCOSAMINE [Concomitant]
     Active Substance: GLUCOSAMINE
     Indication: Supplementation therapy
     Dosage: UNK
     Route: 065
     Dates: start: 2021
  20. NIACIN [Concomitant]
     Active Substance: NIACIN
     Indication: Supplementation therapy
     Dosage: UNK
     Route: 065
     Dates: start: 2021
  21. ALPHA LIPOIC ACID [Concomitant]
     Active Substance: .ALPHA.-LIPOIC ACID
     Indication: Supplementation therapy
     Dosage: UNK
     Route: 065
     Dates: start: 2021
  22. EDETATE DISODIUM [Concomitant]
     Active Substance: EDETATE DISODIUM
     Indication: Heavy metal increased
     Dosage: UNK
     Route: 065
     Dates: start: 2021, end: 202310

REACTIONS (5)
  - Somnolence [Not Recovered/Not Resolved]
  - Dizziness [Recovered/Resolved]
  - Drug ineffective for unapproved indication [Unknown]
  - Drug effective for unapproved indication [Unknown]
  - Overdose [Unknown]

NARRATIVE: CASE EVENT DATE: 20200101
